FAERS Safety Report 8201471-5 (Version None)
Quarter: 2012Q1

REPORT INFORMATION
  Report Type: 
  Country: None (occurrence: None)
  Receive Date: 20120312
  Receipt Date: 20120305
  Transmission Date: 20120608
  Serious: Yes (Hospitalization)
  Sender: FDA-Public Use
  Company Number: FR-TEVA-325097USA

PATIENT
  Sex: Female
  Weight: 65.5 kg

DRUGS (9)
  1. RITUXIMAB [Suspect]
     Dosage: 619 MILLIGRAM;
     Route: 042
     Dates: start: 20120207
  2. NEULASTA [Concomitant]
     Dates: start: 20120201
  3. EPOETIN BETA [Concomitant]
     Dates: start: 20120201
  4. VALSARTAN [Concomitant]
     Dates: start: 20111001
  5. KARGEDIC [Concomitant]
     Dates: start: 20110101
  6. TREANDA [Suspect]
     Dosage: 116 MILLIGRAM;
     Route: 042
     Dates: start: 20120207
  7. FLECAINIDE ACETATE [Concomitant]
     Dates: start: 20110101
  8. VALACICLOVIR [Concomitant]
     Dates: start: 20120207
  9. BACTRIM [Concomitant]
     Dates: start: 20120207

REACTIONS (1)
  - FEBRILE BONE MARROW APLASIA [None]
